FAERS Safety Report 23994882 (Version 2)
Quarter: 2024Q2

REPORT INFORMATION
  Report Type: Spontaneous
  Country: JP (occurrence: JP)
  Receive Date: 20240620
  Receipt Date: 20240627
  Transmission Date: 20240716
  Serious: Yes (Other)
  Sender: FDA-Public Use
  Company Number: JP-PFIZER INC-PV202400079906

PATIENT
  Age: 87 Year
  Sex: Female
  Weight: 48.5 kg

DRUGS (5)
  1. FOSPHENYTOIN SODIUM [Suspect]
     Active Substance: FOSPHENYTOIN SODIUM
     Indication: Partial seizures
     Dosage: UNK
     Route: 042
     Dates: start: 20240610
  2. FOSPHENYTOIN SODIUM [Suspect]
     Active Substance: FOSPHENYTOIN SODIUM
     Dosage: 375 MG (MAINTENANCE DOSE)
     Route: 042
     Dates: start: 20240611
  3. FOSPHENYTOIN SODIUM [Suspect]
     Active Substance: FOSPHENYTOIN SODIUM
     Dosage: 225 MG
     Route: 042
     Dates: start: 20240612, end: 20240613
  4. FOSPHENYTOIN SODIUM [Suspect]
     Active Substance: FOSPHENYTOIN SODIUM
     Dosage: UNK
     Route: 042
     Dates: start: 20240613, end: 20240613
  5. PHENYTOIN [Concomitant]
     Active Substance: PHENYTOIN
     Dosage: 100 MG, 12 HR
     Route: 048
     Dates: start: 20240614, end: 20240614

REACTIONS (4)
  - Depressed level of consciousness [Recovered/Resolved]
  - Tremor [Recovered/Resolved]
  - Therapeutic product effect incomplete [Unknown]
  - Off label use [Unknown]

NARRATIVE: CASE EVENT DATE: 20240612
